FAERS Safety Report 10159104 (Version 3)
Quarter: 2014Q2

REPORT INFORMATION
  Report Type: Report from Study
  Country: FR (occurrence: FR)
  Receive Date: 20140508
  Receipt Date: 20140523
  Transmission Date: 20141212
  Serious: No
  Sender: FDA-Public Use
  Company Number: FR-ROCHE-1390359

PATIENT
  Age: 61 Year
  Sex: Female
  Weight: 47 kg

DRUGS (37)
  1. OBINUTUZUMAB [Suspect]
     Indication: CHRONIC LYMPHOCYTIC LEUKAEMIA
     Route: 042
     Dates: start: 20140410
  2. OBINUTUZUMAB [Suspect]
     Route: 042
     Dates: start: 20140411
  3. OBINUTUZUMAB [Suspect]
     Route: 042
     Dates: start: 20140417
  4. BENDAMUSTINE [Suspect]
     Indication: CHRONIC LYMPHOCYTIC LEUKAEMIA
     Route: 065
     Dates: start: 20140412
  5. BENDAMUSTINE [Suspect]
     Route: 042
     Dates: start: 20140413
  6. CEFTRIAXONE [Concomitant]
     Route: 042
     Dates: start: 20140401, end: 20140410
  7. PRISTINAMYCINE [Concomitant]
     Route: 048
     Dates: start: 20140328, end: 20140401
  8. CIPROFLOXACINE [Concomitant]
     Route: 048
     Dates: start: 20140401, end: 20140407
  9. VANCOMYCINE [Concomitant]
     Route: 042
     Dates: start: 20140410, end: 20140412
  10. PARACETAMOL [Concomitant]
     Route: 048
     Dates: start: 20140310, end: 20140407
  11. PARACETAMOL [Concomitant]
     Dosage: SINGLE DOSE
     Route: 048
     Dates: start: 20140410, end: 20140410
  12. PARACETAMOL [Concomitant]
     Dosage: SINGLE DOSE
     Route: 048
     Dates: start: 20140409, end: 20140409
  13. SODIUM CHLORIDE [Concomitant]
     Route: 042
     Dates: start: 20140409, end: 20140413
  14. VITAMINE B12 ROCHE [Concomitant]
     Route: 042
     Dates: start: 20140411, end: 20140411
  15. FOLINATE DE CALCIUM [Concomitant]
     Route: 042
     Dates: start: 20140411, end: 20140413
  16. SODIUM BICARBONATE [Concomitant]
     Route: 042
     Dates: start: 20140409, end: 20140413
  17. FUROSEMIDE [Concomitant]
     Route: 042
     Dates: start: 20140410, end: 20140412
  18. HEPARINE [Concomitant]
     Route: 042
     Dates: start: 20140409, end: 20140412
  19. METHYLPREDNISOLONE [Concomitant]
     Route: 042
     Dates: start: 20140410, end: 20140411
  20. METHYLPREDNISOLONE [Concomitant]
     Route: 042
     Dates: start: 20140417, end: 20140417
  21. METHYLPREDNISOLONE [Concomitant]
     Route: 042
     Dates: start: 20140424, end: 20140424
  22. DEXCHLORPHENIRAMINE [Concomitant]
     Route: 042
     Dates: start: 20140410, end: 20140411
  23. DEXCHLORPHENIRAMINE [Concomitant]
     Route: 042
     Dates: start: 20140417, end: 20140417
  24. DEXCHLORPHENIRAMINE [Concomitant]
     Route: 042
     Dates: start: 20140424, end: 20140424
  25. ONDANSETRON [Concomitant]
     Route: 042
     Dates: start: 20140412, end: 20140412
  26. ALPRAZOLAM [Concomitant]
     Route: 048
     Dates: start: 20140410, end: 20140410
  27. ALPRAZOLAM [Concomitant]
     Route: 048
  28. HYDROXYZINE [Concomitant]
     Route: 048
     Dates: start: 20140409, end: 20140409
  29. ALLOPURINOL [Concomitant]
     Route: 048
     Dates: start: 20140409, end: 20140418
  30. SULFAMETHOXAZOLE/TRIMETHOPRIM [Concomitant]
     Route: 048
     Dates: start: 20140401
  31. VALACICLOVIR [Concomitant]
     Route: 048
     Dates: start: 20140401
  32. FOLIC ACID [Concomitant]
     Route: 048
     Dates: start: 20140414
  33. FOLIC ACID [Concomitant]
     Route: 048
     Dates: start: 20140401, end: 20140409
  34. OMEPRAZOLE [Concomitant]
     Route: 048
     Dates: start: 20140409, end: 20140410
  35. AMOXICILLINE [Concomitant]
     Route: 048
     Dates: start: 20140401, end: 20140409
  36. AMOXICILLINE [Concomitant]
     Route: 048
     Dates: start: 20140414
  37. RED BLOOD CELL CONCENTRATE [Concomitant]
     Dosage: 1 PACK
     Route: 042
     Dates: start: 20140410, end: 20140410

REACTIONS (1)
  - Hypoxia [Recovered/Resolved]
